FAERS Safety Report 20228664 (Version 1)
Quarter: 2021Q4

REPORT INFORMATION
  Report Type: Spontaneous
  Country: US (occurrence: US)
  Receive Date: 20211225
  Receipt Date: 20211225
  Transmission Date: 20220303
  Serious: No
  Sender: FDA-Public Use
  Company Number: US-SA-SAC20211217000217

PATIENT
  Sex: Male

DRUGS (3)
  1. DUPIXENT [Suspect]
     Active Substance: DUPILUMAB
     Indication: Dermatitis atopic
     Dosage: 300 MG, QOW
     Route: 058
     Dates: start: 202010
  2. IBUPROFEN [Concomitant]
     Active Substance: IBUPROFEN
     Dosage: 200 MG
  3. PAROXETINE [Concomitant]
     Active Substance: PAROXETINE
     Dosage: 10 MG

REACTIONS (1)
  - Eczema [Unknown]
